FAERS Safety Report 19084972 (Version 1)
Quarter: 2021Q2

REPORT INFORMATION
  Report Type: Spontaneous
  Country: GB (occurrence: GB)
  Receive Date: 20210401
  Receipt Date: 20210401
  Transmission Date: 20210717
  Serious: Yes (Other)
  Sender: FDA-Public Use
  Company Number: GB-BEH-2021129891

PATIENT
  Age: 26 Year
  Sex: Female
  Weight: 80 kg

DRUGS (3)
  1. RHOPHYLAC [Suspect]
     Active Substance: HUMAN RHO(D) IMMUNE GLOBULIN
     Indication: RHESUS INCOMPATIBILITY
     Dosage: 1500 INTERNATIONAL UNIT, SINGLE
     Route: 030
     Dates: start: 20210317, end: 20210317
  2. RHOPHYLAC [Suspect]
     Active Substance: HUMAN RHO(D) IMMUNE GLOBULIN
     Indication: RHESUS INCOMPATIBILITY
     Dosage: 1500 INTERNATIONAL UNIT, SINGLE
     Route: 030
     Dates: start: 20210317, end: 20210317
  3. FERROUS FUMARATE [Concomitant]
     Active Substance: FERROUS FUMARATE

REACTIONS (5)
  - Paraesthesia [Recovered/Resolved]
  - Exposure during pregnancy [Unknown]
  - Nervousness [Recovered/Resolved]
  - No adverse event [Unknown]
  - Dyspnoea [Recovered/Resolved]

NARRATIVE: CASE EVENT DATE: 20210317
